FAERS Safety Report 17821978 (Version 1)
Quarter: 2020Q2

REPORT INFORMATION
  Report Type: Spontaneous
  Country: IN (occurrence: IN)
  Receive Date: 20200526
  Receipt Date: 20200526
  Transmission Date: 20200714
  Serious: Yes (Hospitalization, Other)
  Sender: FDA-Public Use
  Company Number: IN-LUPIN PHARMACEUTICALS INC.-2020-02345

PATIENT
  Age: 16 Year
  Sex: Female

DRUGS (5)
  1. TOPIRAMATE TABLETS USP, 100 MG [Suspect]
     Active Substance: TOPIRAMATE
     Dosage: 400 MILLIGRAM, QD (TAPERED DOWN TO 400 MILLIGRAMS DAILY OVER A PERIOD OF FEW WEEKS)
     Route: 065
  2. LEVETIRACETAM. [Suspect]
     Active Substance: LEVETIRACETAM
     Indication: PROPHYLAXIS
     Dosage: 1000 MILLIGRAM, QD
     Route: 065
  3. PHENOBARBITONE [PHENOBARBITAL] [Suspect]
     Active Substance: PHENOBARBITAL
     Indication: PROPHYLAXIS
     Dosage: 120 MILLIGRAM, QD
     Route: 065
  4. TOPIRAMATE TABLETS USP, 100 MG [Suspect]
     Active Substance: TOPIRAMATE
     Indication: PRODUCT USED FOR UNKNOWN INDICATION
     Dosage: UNK
     Route: 065
  5. TOPIRAMATE TABLETS USP, 100 MG [Suspect]
     Active Substance: TOPIRAMATE
     Dosage: 1000 MILLIGRAM (INCREASED DOSE, 4-2-4 0)
     Route: 065

REACTIONS (5)
  - Self-medication [Recovered/Resolved]
  - Weight increased [Recovered/Resolved]
  - Intentional product use issue [Recovered/Resolved]
  - Weight decreased [Recovered/Resolved]
  - Drug abuse [Recovered/Resolved]
